FAERS Safety Report 18104913 (Version 7)
Quarter: 2020Q4

REPORT INFORMATION
  Report Type: Report from Study
  Country: CA (occurrence: CA)
  Receive Date: 20200803
  Receipt Date: 20201001
  Transmission Date: 20210113
  Serious: Yes (Other)
  Sender: FDA-Public Use
  Company Number: CA-NALPROPION PHARMACEUTICALS INC.-2020-009935

PATIENT

DRUGS (8)
  1. CONTRAVE [Suspect]
     Active Substance: BUPROPION HYDROCHLORIDE\NALTREXONE HYDROCHLORIDE
     Dosage: STRENGTH: 90 MG/8 MG, TWO TABLETS IN MORNING AND TWO TABLETS IN EVENING
     Route: 048
     Dates: start: 20200326, end: 2020
  2. TRAMADOL. [Suspect]
     Active Substance: TRAMADOL
     Indication: PAIN
     Dosage: STARTED APPROXIMATELY FROM 19/JUL/2020, AS NEEDED
     Route: 048
     Dates: start: 202007, end: 202007
  3. CONTRAVE [Suspect]
     Active Substance: BUPROPION HYDROCHLORIDE\NALTREXONE HYDROCHLORIDE
     Dosage: STRENGTH: 90 MG/8 MG, ONE TABLET IN MORNING AND ONE TABLET IN EVENING
     Route: 048
     Dates: start: 20200312, end: 20200318
  4. CONTRAVE [Suspect]
     Active Substance: BUPROPION HYDROCHLORIDE\NALTREXONE HYDROCHLORIDE
     Dosage: STRENGTH: 90 MG/8 MG, TWO TABLETS IN MORNING AND ONE TABLET IN EVENING
     Route: 048
     Dates: start: 20200319, end: 20200325
  5. CONTRAVE [Suspect]
     Active Substance: BUPROPION HYDROCHLORIDE\NALTREXONE HYDROCHLORIDE
     Dosage: STRENGTH: 90 MG/ 8 MG, 1 TABLET IN MORNING AND 1 TABLET IN EVENING. 24/AUG/2020 (APPROX)
     Route: 048
     Dates: start: 202008
  6. CELECOXIB. [Concomitant]
     Active Substance: CELECOXIB
     Indication: ARTHRALGIA
     Dosage: 1 IN 1 D
     Route: 048
  7. GABAPENTIN. [Concomitant]
     Active Substance: GABAPENTIN
     Indication: PAIN
     Dosage: 2 IN 1 D
     Route: 048
  8. CONTRAVE [Suspect]
     Active Substance: BUPROPION HYDROCHLORIDE\NALTREXONE HYDROCHLORIDE
     Indication: WEIGHT CONTROL
     Dosage: STRENGTH: 90 MG/8 MG, ONE TABLET ONCE IN MORNING
     Route: 048
     Dates: start: 20200305, end: 20200311

REACTIONS (27)
  - Dizziness [Recovering/Resolving]
  - Fatigue [Recovering/Resolving]
  - Contraindicated product administered [Unknown]
  - Contusion [Recovering/Resolving]
  - Pain [Recovered/Resolved]
  - Dyspnoea [Unknown]
  - Headache [Not Recovered/Not Resolved]
  - Neck injury [Recovering/Resolving]
  - Arthropathy [Recovering/Resolving]
  - Pain in extremity [Unknown]
  - Abdominal discomfort [Recovering/Resolving]
  - Feeling abnormal [Recovering/Resolving]
  - Loss of personal independence in daily activities [Not Recovered/Not Resolved]
  - Arthralgia [Not Recovered/Not Resolved]
  - Vomiting [Unknown]
  - Therapeutic product effect incomplete [Unknown]
  - Drug titration error [Unknown]
  - Fall [Recovering/Resolving]
  - Limb injury [Recovering/Resolving]
  - Wrong technique in product usage process [Unknown]
  - Joint injury [Recovering/Resolving]
  - Product dose omission issue [Unknown]
  - Illness [Unknown]
  - Head injury [Recovering/Resolving]
  - Gait disturbance [Recovering/Resolving]
  - Dysgeusia [Recovering/Resolving]
  - Anxiety [Not Recovered/Not Resolved]

NARRATIVE: CASE EVENT DATE: 2020
